FAERS Safety Report 7902096-9 (Version None)
Quarter: 2011Q4

REPORT INFORMATION
  Report Type: 
  Country: None (occurrence: None)
  Receive Date: 20111108
  Receipt Date: 20111027
  Transmission Date: 20120403
  Serious: Yes (Hospitalization)
  Sender: FDA-Public Use
  Company Number: US-BAYER-2011-064180

PATIENT
  Sex: Female
  Weight: 76.644 kg

DRUGS (5)
  1. PRILOSEC [Concomitant]
     Indication: ABDOMINAL PAIN UPPER
     Dosage: UNK UNK, QD
  2. VITAMIN B-12 [Concomitant]
     Dosage: UNK UNK, BID
     Dates: start: 20070901
  3. SYNTHROID [Concomitant]
     Dosage: UNK
     Dates: start: 20050101
  4. UNCODEABLE ^UNCLASSIFIABLE^ [Concomitant]
     Dosage: UNK UNK, BID
     Dates: start: 20070901
  5. YAZ [Suspect]
     Indication: CONTRACEPTION
     Dosage: UNK
     Dates: start: 20060101, end: 20070101

REACTIONS (4)
  - GALLBLADDER DISORDER [None]
  - INJURY [None]
  - CHOLECYSTITIS CHRONIC [None]
  - PAIN [None]
